FAERS Safety Report 10393944 (Version 1)
Quarter: 2014Q3

REPORT INFORMATION
  Report Type: Spontaneous
  Country: US (occurrence: US)
  Receive Date: 20140819
  Receipt Date: 20140819
  Transmission Date: 20150326
  Serious: Yes (Hospitalization)
  Sender: FDA-Public Use
  Company Number: US-OTSUKA-US-2014-12002

PATIENT

DRUGS (2)
  1. ABILIFY MAINTENA [Suspect]
     Active Substance: ARIPIPRAZOLE
     Dosage: 200 MG MILLIGRAM(S), UNKNOWN
     Route: 065
  2. ABILIFY MAINTENA [Suspect]
     Active Substance: ARIPIPRAZOLE
     Indication: PRODUCT USED FOR UNKNOWN INDICATION
     Dosage: 400 MG MILLIGRAM(S), UNKNOWN
     Route: 065

REACTIONS (4)
  - Tremor [Not Recovered/Not Resolved]
  - Impaired work ability [Not Recovered/Not Resolved]
  - Psychiatric decompensation [Not Recovered/Not Resolved]
  - Delusion [Not Recovered/Not Resolved]

NARRATIVE: CASE EVENT DATE: 20140806
